FAERS Safety Report 20675303 (Version 2)
Quarter: 2022Q2

REPORT INFORMATION
  Report Type: Spontaneous
  Country: JP (occurrence: JP)
  Receive Date: 20220405
  Receipt Date: 20220531
  Transmission Date: 20220721
  Serious: Yes (Hospitalization, Other)
  Sender: FDA-Public Use
  Company Number: JP-BRISTOL-MYERS SQUIBB COMPANY-BMS-2021-061798

PATIENT
  Age: 54 Year
  Sex: Male

DRUGS (9)
  1. YERVOY [Suspect]
     Active Substance: IPILIMUMAB
     Indication: Non-small cell lung cancer recurrent
     Dosage: UNAVAILABLE
     Route: 041
     Dates: start: 20210413
  2. YERVOY [Suspect]
     Active Substance: IPILIMUMAB
     Dosage: UNKNOWN
     Route: 041
     Dates: start: 202107
  3. OPDIVO [Suspect]
     Active Substance: NIVOLUMAB
     Indication: Non-small cell lung cancer recurrent
     Dosage: UNKNOWN
     Route: 041
     Dates: start: 20210413
  4. OPDIVO [Suspect]
     Active Substance: NIVOLUMAB
     Dosage: UNKNOWN
     Route: 041
     Dates: start: 202107
  5. CARBOPLATIN [Concomitant]
     Active Substance: CARBOPLATIN
     Indication: Non-small cell lung cancer recurrent
     Dosage: UNKNOWN
     Route: 065
     Dates: start: 20210413
  6. PEMETREXED [Concomitant]
     Active Substance: PEMETREXED
     Indication: Non-small cell lung cancer recurrent
     Dosage: UNKNOWN
     Route: 065
     Dates: start: 20210413
  7. UFT [Concomitant]
     Active Substance: TEGAFUR\URACIL
     Indication: Product used for unknown indication
     Dosage: 500 MG, EVERYDAY (200 MG IN THE MORNING, 200 MG AT NOON, AND 100 MG IN THE EVENING)
     Route: 048
  8. URSODIOL [Concomitant]
     Active Substance: URSODIOL
     Indication: Product used for unknown indication
     Dosage: 100 MG, Q8H
     Route: 048
  9. UMECLIDINIUM BROMIDE\VILANTEROL TRIFENATATE [Concomitant]
     Active Substance: UMECLIDINIUM BROMIDE\VILANTEROL TRIFENATATE
     Indication: Product used for unknown indication
     Dosage: 1 INHALATION, EVERYDAY
     Route: 055

REACTIONS (7)
  - Hiccups [Recovering/Resolving]
  - Constipation [Recovering/Resolving]
  - Hypopituitarism [Recovered/Resolved]
  - Adrenal insufficiency [Recovered/Resolved]
  - Rash [Recovering/Resolving]
  - Adrenocorticotropic hormone deficiency [Recovered/Resolved]
  - Hyperthyroidism [Not Recovered/Not Resolved]

NARRATIVE: CASE EVENT DATE: 20210619
